FAERS Safety Report 7083921-3 (Version None)
Quarter: 2010Q4

REPORT INFORMATION
  Report Type: 
  Country: None (occurrence: None)
  Receive Date: 20101104
  Receipt Date: 20100119
  Transmission Date: 20110411
  Serious: No
  Sender: FDA-Public Use
  Company Number: US-ABBOTT-10P-163-0621820-00

PATIENT
  Sex: Male

DRUGS (3)
  1. KALETRA [Suspect]
     Indication: HIV INFECTION
     Dates: end: 20091201
  2. KALETRA [Suspect]
     Dates: start: 20100101
  3. KALETRA [Suspect]

REACTIONS (1)
  - DIARRHOEA [None]
